FAERS Safety Report 14010439 (Version 2)
Quarter: 2017Q4

REPORT INFORMATION
  Report Type: Spontaneous
  Country: BR (occurrence: BR)
  Receive Date: 20170926
  Receipt Date: 20171030
  Transmission Date: 20180321
  Serious: Yes (Other)
  Sender: FDA-Public Use
  Company Number: BR-009507513-1709BRA011785

PATIENT
  Sex: Female

DRUGS (1)
  1. GRACIAL [Suspect]
     Active Substance: DESOGESTREL\ETHINYL ESTRADIOL
     Dosage: 1 TABLET ONCE A DAY
     Route: 048
     Dates: start: 20121229, end: 201709

REACTIONS (1)
  - Urine odour abnormal [Not Recovered/Not Resolved]
